FAERS Safety Report 5427490-X (Version None)
Quarter: 2007Q3

REPORT INFORMATION
  Report Type: 
  Country: None (occurrence: None)
  Receive Date: 20070824
  Receipt Date: 20070824
  Transmission Date: 20080115
  Serious: Yes (Death)
  Sender: FDA-Public Use
  Company Number: None

PATIENT
  Age: 62 Year
  Sex: Female
  Weight: 53 kg

DRUGS (5)
  1. WARFARIN [Suspect]
     Indication: PULMONARY EMBOLISM
     Dates: start: 20070623, end: 20070714
  2. ENOXAPARIN SODIUM [Suspect]
     Indication: PULMONARY EMBOLISM
     Dosage: 1 MG/KG BID - SUBCUTANEOUS
     Route: 058
     Dates: start: 20070620
  3. ENALAPRIL [Concomitant]
  4. DIGOXIN [Concomitant]
  5. SPIRONOLACTONE/ FUROSEMIDE [Concomitant]

REACTIONS (3)
  - CHEST PAIN [None]
  - REFUSAL OF TREATMENT BY PATIENT [None]
  - SUDDEN DEATH [None]
